FAERS Safety Report 6579800-8 (Version None)
Quarter: 2010Q1

REPORT INFORMATION
  Report Type: 
  Country: None (occurrence: None)
  Receive Date: 20100212
  Receipt Date: 20100208
  Transmission Date: 20100710
  Serious: Yes (Hospitalization)
  Sender: FDA-Public Use
  Company Number: FR-ROCHE-684075

PATIENT
  Sex: Female

DRUGS (7)
  1. ROCEPHIN [Suspect]
     Route: 048
     Dates: start: 20091217, end: 20091228
  2. PYOSTACINE [Suspect]
     Route: 048
     Dates: start: 20091221, end: 20091225
  3. AMOXICILLIN [Concomitant]
     Dosage: DRUG NAME: AMOXICILLINE BASE.
     Route: 048
     Dates: start: 20091211, end: 20091212
  4. AUGMENTIN [Concomitant]
     Route: 048
     Dates: start: 20091212, end: 20091217
  5. ZACLAR [Concomitant]
     Dosage: DRUG NAME: ZECLAR.
     Dates: start: 20091210, end: 20091211
  6. ROVAMYCINE [Concomitant]
     Dates: start: 20091217, end: 20091221
  7. RULID [Concomitant]
     Dates: start: 20091213, end: 20091216

REACTIONS (1)
  - INTRACRANIAL PRESSURE INCREASED [None]
